FAERS Safety Report 24264539 (Version 1)
Quarter: 2024Q3

REPORT INFORMATION
  Report Type: Spontaneous
  Country: SK (occurrence: SK)
  Receive Date: 20240829
  Receipt Date: 20240829
  Transmission Date: 20241017
  Serious: Yes (Hospitalization)
  Sender: ABBVIE
  Company Number: SK-ABBVIE-5897952

PATIENT
  Age: 43 Year
  Sex: Female

DRUGS (16)
  1. RINVOQ [Suspect]
     Active Substance: UPADACITINIB
     Indication: Dermatitis atopic
     Dosage: TIME INTERVAL: 0.33333333 DAYS: FREQUENCY TEXT: 2-2-2?DRUG START DATE 2024
     Route: 048
  2. RINVOQ [Suspect]
     Active Substance: UPADACITINIB
     Indication: Dermatitis atopic
     Dosage: TIME INTERVAL: 0.33333333 DAYS: FREQUENCY TEXT: 1-1-1?DRUG START DATE AND END DATE 2024
     Route: 048
  3. RINVOQ [Suspect]
     Active Substance: UPADACITINIB
     Indication: Dermatitis atopic
     Dosage: FREQUENCY TEXT: 0-0-1,FREQUENCY TEXT: 0-0-2?DOSE REDUCED IN 2024
     Route: 048
     Dates: start: 202403
  4. MEDOFLUCON [Concomitant]
     Indication: Product used for unknown indication
  5. ALVESCO [Concomitant]
     Active Substance: CICLESONIDE
     Indication: Product used for unknown indication
     Dosage: 160
  6. ATORVASTATIN [Concomitant]
     Active Substance: ATORVASTATIN
     Indication: Product used for unknown indication
  7. sulfasalazin-EN [Concomitant]
     Indication: Product used for unknown indication
     Dosage: TIME INTERVAL: 0.33333333 DAYS
  8. MEDROL [Concomitant]
     Active Substance: METHYLPREDNISOLONE
     Indication: Product used for unknown indication
  9. PANTOPRAZOLE SODIUM [Concomitant]
     Active Substance: PANTOPRAZOLE SODIUM
     Indication: Product used for unknown indication
  10. CLOPIDOGREL [Concomitant]
     Active Substance: CLOPIDOGREL BISULFATE
     Indication: Product used for unknown indication
  11. MOMETASONE [Concomitant]
     Active Substance: MOMETASONE
     Indication: Product used for unknown indication
  12. DESLORATADINE [Concomitant]
     Active Substance: DESLORATADINE
     Indication: Product used for unknown indication
  13. MONKASTA [Concomitant]
     Indication: Product used for unknown indication
  14. AZOXIMER BROMIDE [Concomitant]
     Active Substance: AZOXIMER BROMIDE
     Indication: Product used for unknown indication
  15. ASPIRIN [Concomitant]
     Active Substance: ASPIRIN
     Indication: Product used for unknown indication
  16. STELARA [Concomitant]
     Active Substance: USTEKINUMAB
     Indication: Crohn^s disease

REACTIONS (3)
  - Speech disorder [Recovering/Resolving]
  - Fatigue [Unknown]
  - Embolic stroke [Unknown]

NARRATIVE: CASE EVENT DATE: 20240530
